FAERS Safety Report 8202800-9 (Version None)
Quarter: 2012Q1

REPORT INFORMATION
  Report Type: 
  Country: None (occurrence: None)
  Receive Date: 20120312
  Receipt Date: 20120312
  Transmission Date: 20120608
  Serious: No
  Sender: FDA-Public Use
  Company Number: None

PATIENT

DRUGS (4)
  1. CYMBALTA [Suspect]
     Indication: DEPRESSION
     Dosage: 1PILL
     Route: 048
     Dates: start: 20110916, end: 20120208
  2. CYMBALTA [Suspect]
     Indication: ARTHRALGIA
     Dosage: 1PILL
     Route: 048
     Dates: start: 20110916, end: 20120208
  3. CYMBALTA [Suspect]
     Indication: ANXIETY
     Dosage: 1PILL
     Route: 048
     Dates: start: 20110916, end: 20120208
  4. CYMBALTA [Concomitant]
     Dosage: 1 PILL
     Route: 048
     Dates: start: 20120208, end: 20120219

REACTIONS (4)
  - MENTAL STATUS CHANGES [None]
  - DRUG WITHDRAWAL SYNDROME [None]
  - PARAESTHESIA [None]
  - HYPERAESTHESIA [None]
